FAERS Safety Report 6747580-9 (Version None)
Quarter: 2010Q2

REPORT INFORMATION
  Report Type: 
  Country: None (occurrence: None)
  Receive Date: 20100528
  Receipt Date: 20100520
  Transmission Date: 20101027
  Serious: Yes (Other)
  Sender: FDA-Public Use
  Company Number: US-JNJFOC-20100508921

PATIENT
  Sex: Female

DRUGS (2)
  1. REMICADE [Suspect]
     Indication: RHEUMATOID ARTHRITIS
     Route: 042
     Dates: start: 20091211, end: 20100129
  2. REMICADE [Suspect]
     Route: 042
     Dates: start: 20091211, end: 20100129

REACTIONS (1)
  - NEOPLASM MALIGNANT [None]
